FAERS Safety Report 8386751-5 (Version None)
Quarter: 2012Q2

REPORT INFORMATION
  Report Type: 
  Country: None (occurrence: None)
  Receive Date: 20120522
  Receipt Date: 20120522
  Transmission Date: 20120825
  Serious: No
  Sender: FDA-Public Use
  Company Number: None

PATIENT
  Age: 38 Year
  Sex: Female
  Weight: 62.1428 kg

DRUGS (2)
  1. OPANA ER [Suspect]
     Indication: BACK DISORDER
     Dosage: ONE EVERY 12 HOURS PO
     Route: 048
     Dates: start: 20120514, end: 20120517
  2. OPANA ER [Suspect]
     Indication: NERVE COMPRESSION
     Dosage: ONE EVERY 12 HOURS PO
     Route: 048
     Dates: start: 20120514, end: 20120517

REACTIONS (7)
  - NAUSEA [None]
  - DRUG INEFFECTIVE [None]
  - ABDOMINAL PAIN UPPER [None]
  - CONVULSION [None]
  - MALAISE [None]
  - PRODUCT FORMULATION ISSUE [None]
  - VOMITING [None]
